FAERS Safety Report 5944750-4 (Version None)
Quarter: 2008Q4

REPORT INFORMATION
  Report Type: 
  Country: None (occurrence: None)
  Receive Date: 20081107
  Receipt Date: 20081031
  Transmission Date: 20090506
  Serious: Yes (Death)
  Sender: FDA-Public Use
  Company Number: JP-AMGEN-US317643

PATIENT
  Age: 90 Year
  Sex: Female

DRUGS (12)
  1. ENBREL [Suspect]
     Indication: RHEUMATOID ARTHRITIS
     Route: 058
     Dates: start: 20060620
  2. RHEUMATREX [Concomitant]
     Dosage: UNSPECIFIED
     Route: 048
  3. LOXONIN [Concomitant]
     Dosage: UNSPECIFIED
     Route: 048
  4. BREDININ [Concomitant]
     Dosage: UNSPECIFIED
     Route: 048
  5. VITAMEDIN [Concomitant]
     Dosage: UNSPECIFIED
     Route: 048
  6. ISONIAZID [Concomitant]
     Dosage: UNSPECIFIED
     Route: 048
  7. LANSOPRAZOLE [Concomitant]
     Dosage: UNSPECIFIED
     Route: 048
  8. FERROMIA [Concomitant]
     Dosage: UNSPECIFIED
     Route: 048
  9. ALFAROL [Concomitant]
     Dosage: UNSPECIFIED
     Route: 048
  10. BONALON [Concomitant]
     Dosage: UNSPECIFIED
     Route: 048
  11. PREDONINE [Concomitant]
     Dosage: UNSPECIFIED
     Route: 048
  12. FOLIAMIN [Concomitant]
     Dosage: UNSPECIFIED
     Route: 048

REACTIONS (2)
  - PNEUMONIA [None]
  - RESPIRATORY FAILURE [None]
